FAERS Safety Report 9719220 (Version 2)
Quarter: 2013Q4

REPORT INFORMATION
  Report Type: Spontaneous
  Country: BR (occurrence: BR)
  Receive Date: 20131127
  Receipt Date: 20131226
  Transmission Date: 20140711
  Serious: Yes (Other)
  Sender: FDA-Public Use
  Company Number: PHHY2013BR134759

PATIENT
  Age: 59 Year
  Sex: Male

DRUGS (4)
  1. DIOVAN [Suspect]
     Indication: HYPERTENSION
     Dosage: 160 MG, DAILY
     Route: 048
     Dates: start: 20131113
  2. OMEPRAMIX [Concomitant]
     Indication: ABDOMINAL PAIN UPPER
     Dosage: 5 DF (500 MG AMOX, 500 MG CLAR, 20 MG OMEP), DAILY
     Route: 048
  3. ATENOLOL [Concomitant]
     Indication: HYPERTENSION
     Dosage: 25 MG, DAILY
     Route: 048
  4. OLCADIL [Concomitant]
     Dosage: 1 MG, DAILY
     Route: 048

REACTIONS (9)
  - Tachycardia [Recovered/Resolved]
  - Blood pressure inadequately controlled [Recovering/Resolving]
  - Headache [Not Recovered/Not Resolved]
  - Vascular pain [Unknown]
  - Diarrhoea [Not Recovered/Not Resolved]
  - Asthenia [Not Recovered/Not Resolved]
  - Local swelling [Unknown]
  - Dizziness [Not Recovered/Not Resolved]
  - Hypertension [Unknown]
